FAERS Safety Report 7535734-3 (Version None)
Quarter: 2011Q2

REPORT INFORMATION
  Report Type: 
  Country: None (occurrence: None)
  Receive Date: 20110602
  Receipt Date: 20110518
  Transmission Date: 20111010
  Serious: Yes (Disabling, Other)
  Sender: FDA-Public Use
  Company Number: 20110289

PATIENT
  Age: 87 Year
  Sex: Female
  Weight: 65.7716 kg

DRUGS (3)
  1. KENALOG [Suspect]
     Indication: ARTHRALGIA
     Dosage: 1 ML INTRA-ARTICULAR
     Route: 014
     Dates: start: 20110315, end: 20110315
  2. LIDOCAINE HYDROCHLORIDE [Suspect]
     Indication: ARTHRALGIA
     Dosage: 2 ML INTRA-ARTICULAR
     Route: 014
     Dates: start: 20110315, end: 20110315
  3. DEXAMETHASONE SODIUM PHOSPHATE [Suspect]
     Indication: ARTHRALGIA
     Dosage: 0.5 ML
     Dates: start: 20110315, end: 20110315

REACTIONS (11)
  - INSOMNIA [None]
  - ABASIA [None]
  - ARTHRITIS BACTERIAL [None]
  - CULTURE POSITIVE [None]
  - MUSCLE SPASMS [None]
  - PAIN IN EXTREMITY [None]
  - INFLUENZA LIKE ILLNESS [None]
  - PRODUCT QUALITY ISSUE [None]
  - FALL [None]
  - STREPTOCOCCUS TEST POSITIVE [None]
  - BURSITIS INFECTIVE [None]
